FAERS Safety Report 4297834-3 (Version None)
Quarter: 2004Q1

REPORT INFORMATION
  Report Type: 
  Country: None (occurrence: None)
  Receive Date: 20040213
  Receipt Date: 20040115
  Transmission Date: 20041129
  Serious: Yes (Other)
  Sender: FDA-Public Use
  Company Number: JP-JNJFOC-20040103698

PATIENT
  Age: 14 Year
  Sex: Female

DRUGS (7)
  1. RISPERDAL [Suspect]
     Dosage: 2 MG, ORAL; 6 MG, IN 1 DAY, ORAL
     Route: 048
     Dates: start: 20011228, end: 20020101
  2. RISPERDAL [Suspect]
     Dosage: 2 MG, ORAL; 6 MG, IN 1 DAY, ORAL
     Route: 048
     Dates: start: 20020104, end: 20020201
  3. QUETIAPINE FUMARATE (QUETIAPINE FUMARATE) [Suspect]
     Dosage: ORAL; 300 MG, IN 1 DAY, ORAL; 100 MG, IN 1 DAY, ORAL; 75 MG, IN 1 DAY, ORAL; 50 MG, IN 1 DAY, ORAL
     Route: 048
     Dates: start: 20001201, end: 20020118
  4. QUETIAPINE FUMARATE (QUETIAPINE FUMARATE) [Suspect]
     Dosage: ORAL; 300 MG, IN 1 DAY, ORAL; 100 MG, IN 1 DAY, ORAL; 75 MG, IN 1 DAY, ORAL; 50 MG, IN 1 DAY, ORAL
     Route: 048
     Dates: start: 20020119, end: 20020124
  5. QUETIAPINE FUMARATE (QUETIAPINE FUMARATE) [Suspect]
     Dosage: ORAL; 300 MG, IN 1 DAY, ORAL; 100 MG, IN 1 DAY, ORAL; 75 MG, IN 1 DAY, ORAL; 50 MG, IN 1 DAY, ORAL
     Route: 048
     Dates: start: 20020125, end: 20020327
  6. QUETIAPINE FUMARATE (QUETIAPINE FUMARATE) [Suspect]
     Dosage: ORAL; 300 MG, IN 1 DAY, ORAL; 100 MG, IN 1 DAY, ORAL; 75 MG, IN 1 DAY, ORAL; 50 MG, IN 1 DAY, ORAL
     Route: 048
     Dates: start: 20020328, end: 20020410
  7. QUETIAPINE FUMARATE (QUETIAPINE FUMARATE) [Suspect]
     Dosage: ORAL; 300 MG, IN 1 DAY, ORAL; 100 MG, IN 1 DAY, ORAL; 75 MG, IN 1 DAY, ORAL; 50 MG, IN 1 DAY, ORAL
     Route: 048
     Dates: start: 20020411, end: 20020801

REACTIONS (2)
  - DRUG INTERACTION [None]
  - THROMBOCYTOPENIA [None]
